FAERS Safety Report 26002771 (Version 1)
Quarter: 2025Q4

REPORT INFORMATION
  Report Type: Spontaneous
  Country: US (occurrence: US)
  Receive Date: 20251106
  Receipt Date: 20251106
  Transmission Date: 20260119
  Serious: Yes (Hospitalization)
  Sender: CSL BEHRING
  Company Number: US-BEH-2025223610

PATIENT
  Age: 50 Year
  Sex: Male

DRUGS (3)
  1. PRIVIGEN [Suspect]
     Active Substance: HUMAN IMMUNOGLOBULIN G
     Indication: Myasthenia gravis
     Dosage: 40 G, EVERY 2 MONTHS
     Route: 042
     Dates: start: 202307
  2. PRIVIGEN [Suspect]
     Active Substance: HUMAN IMMUNOGLOBULIN G
     Dosage: 5 G, EVERY 2 MONTHS
     Route: 042
  3. VYVGART HYTRULO [Concomitant]
     Active Substance: EFGARTIGIMOD ALFA\HYALURONIDASE-QVFC

REACTIONS (2)
  - Intensive care [Unknown]
  - Off label use [Unknown]
